FAERS Safety Report 8715648 (Version 4)
Quarter: 2013Q1

REPORT INFORMATION
  Report Type: Report from Study
  Country: CA (occurrence: CA)
  Receive Date: 20120809
  Receipt Date: 20130111
  Transmission Date: 20140127
  Serious: Yes (Other)
  Sender: FDA-Public Use
  Company Number: CA-ROCHE-1098539

PATIENT
  Sex: Female
  Weight: 56.3 kg

DRUGS (5)
  1. TOCILIZUMAB [Suspect]
     Indication: RHEUMATOID ARTHRITIS
     Dosage: LAST INFUSION WAS ON 03/AUG/2012
     Route: 042
     Dates: start: 20120316
  2. ATORVASTATIN CALCIUM [Concomitant]
  3. IMURAN [Concomitant]
  4. PIROXICAM [Concomitant]
  5. TECTA [Concomitant]

REACTIONS (2)
  - Hand fracture [Unknown]
  - Pneumonia [Not Recovered/Not Resolved]
